FAERS Safety Report 4324219-3 (Version None)
Quarter: 2004Q1

REPORT INFORMATION
  Report Type: 
  Country: None (occurrence: None)
  Receive Date: 20040326
  Receipt Date: 20040109
  Transmission Date: 20041129
  Serious: No
  Sender: FDA-Public Use
  Company Number: US-GLAXOSMITHKLINE-A0492257A

PATIENT
  Age: 75 Year
  Sex: Female

DRUGS (4)
  1. ADVAIR DISKUS 100/50 [Suspect]
     Indication: ASTHMA
     Dosage: 1PUFF TWICE PER DAY
     Route: 055
     Dates: start: 20031220
  2. ALBUTEROL [Concomitant]
     Route: 065
  3. SYNTHROID [Concomitant]
  4. IPRATROPIUM BROMIDE [Concomitant]
     Route: 065

REACTIONS (1)
  - RHINITIS [None]
